FAERS Safety Report 6011427-9 (Version None)
Quarter: 2008Q4

REPORT INFORMATION
  Report Type: 
  Country: None (occurrence: None)
  Receive Date: 20081218
  Receipt Date: 20000915
  Transmission Date: 20090506
  Serious: Yes (Death, Hospitalization)
  Sender: FDA-Public Use
  Company Number: FR-ROCHE-240727

PATIENT
  Age: 37 Year
  Sex: Male
  Weight: 65 kg

DRUGS (4)
  1. ROCEPHIN [Suspect]
     Indication: DRUG USE FOR UNKNOWN INDICATION
     Route: 065
  2. AMITRIPTYLINE HCL [Suspect]
     Indication: HEADACHE
     Route: 048
     Dates: start: 20000501
  3. CIPROFLOXACIN HYDROCHLORIDE [Concomitant]
  4. PRODAFALGAN [Concomitant]

REACTIONS (4)
  - DEATH [None]
  - DIPLOPIA [None]
  - MYCOTIC ANEURYSM [None]
  - SINUSITIS ASPERGILLUS [None]
